FAERS Safety Report 26190398 (Version 1)
Quarter: 2025Q4

REPORT INFORMATION
  Report Type: Spontaneous
  Country: JP (occurrence: JP)
  Receive Date: 20251223
  Receipt Date: 20251223
  Transmission Date: 20260117
  Serious: Yes (Other)
  Sender: ALEXION PHARMACEUTICALS
  Company Number: JP-ASTRAZENECA-202508JPN026833JP

PATIENT
  Age: 57 Year
  Sex: Female

DRUGS (3)
  1. FASENRA [Suspect]
     Active Substance: BENRALIZUMAB
     Indication: Asthma
     Dosage: UNK
     Route: 065
  2. FASENRA [Suspect]
     Active Substance: BENRALIZUMAB
  3. DUPILUMAB [Suspect]
     Active Substance: DUPILUMAB
     Route: 065

REACTIONS (3)
  - Interstitial lung disease [Unknown]
  - Asthma [Unknown]
  - Liver disorder [Unknown]
